FAERS Safety Report 6110125-0 (Version None)
Quarter: 2009Q1

REPORT INFORMATION
  Report Type: 
  Country: None (occurrence: None)
  Receive Date: 20090306
  Receipt Date: 20090303
  Transmission Date: 20090719
  Serious: Yes (Other)
  Sender: FDA-Public Use
  Company Number: A0771260A

PATIENT
  Sex: Male

DRUGS (1)
  1. ALGINIC ACID + ALUMINIUM HYDROXIDE + MAGNESIUM CARBONATE (FO (ALFIN.AC [Suspect]
     Dosage: ORAL
     Route: 048

REACTIONS (1)
  - YELLOW SKIN [None]
